FAERS Safety Report 6399811-5 (Version None)
Quarter: 2009Q4

REPORT INFORMATION
  Report Type: 
  Country: None (occurrence: None)
  Receive Date: 20091009
  Receipt Date: 20091009
  Transmission Date: 20100525
  Serious: Yes (Other)
  Sender: FDA-Public Use
  Company Number: None

PATIENT
  Sex: Female
  Weight: 63.05 kg

DRUGS (2)
  1. DIAZEPAM [Suspect]
     Indication: ANXIETY
     Dosage: 5MG PRN ONE EVERY DAY PO
     Route: 048
     Dates: start: 20080701
  2. (GENERIC) HYDROCODONE 7.5MG/ACETOMINOPHEN 750MG [Suspect]
     Indication: OSTEOARTHRITIS
     Dosage: 7.5MG/750MG ONE TWICE A DAY PRN PO
     Route: 048
     Dates: start: 20050501

REACTIONS (4)
  - DYSPNOEA [None]
  - HYPERSENSITIVITY [None]
  - PRODUCT SUBSTITUTION ISSUE [None]
  - PRURITUS [None]
